FAERS Safety Report 26139486 (Version 1)
Quarter: 2025Q4

REPORT INFORMATION
  Report Type: Spontaneous
  Country: US (occurrence: None)
  Receive Date: 20251209
  Receipt Date: 20251209
  Transmission Date: 20260117
  Serious: Yes (Other)
  Sender: FDA-CTU
  Company Number: None

PATIENT
  Age: 59 Year
  Sex: Male

DRUGS (1)
  1. CAPECITABINE [Suspect]
     Active Substance: CAPECITABINE
     Indication: Small intestine carcinoma
     Dosage: FREQUENCY : TWICE A DAY;
     Route: 048
     Dates: start: 20250910, end: 20251125

REACTIONS (4)
  - Dry skin [None]
  - Skin discolouration [None]
  - Pain in extremity [None]
  - Gait inability [None]
